FAERS Safety Report 20939667 (Version 1)
Quarter: 2022Q2

REPORT INFORMATION
  Report Type: Report from Study
  Country: US (occurrence: US)
  Receive Date: 20220609
  Receipt Date: 20220609
  Transmission Date: 20220720
  Serious: Yes (Other)
  Sender: FDA-Public Use
  Company Number: US-GILEAD-2022-0584878

PATIENT
  Age: 52 Year
  Sex: Female

DRUGS (1)
  1. BICTEGRAVIR\EMTRICITABINE\TENOFOVIR ALAFENAMIDE [Suspect]
     Active Substance: BICTEGRAVIR\EMTRICITABINE\TENOFOVIR ALAFENAMIDE
     Indication: HIV infection
     Dosage: UNK
     Route: 065

REACTIONS (12)
  - Osteoporosis [Unknown]
  - Attention deficit hyperactivity disorder [Unknown]
  - Hypersensitivity [Unknown]
  - Arthritis [Unknown]
  - Back disorder [Unknown]
  - Blood cholesterol abnormal [Unknown]
  - Menopause [Unknown]
  - Obesity [Unknown]
  - Bone disorder [Unknown]
  - Gastrointestinal disorder [Unknown]
  - Sexually transmitted disease [Unknown]
  - Visual impairment [Unknown]
